FAERS Safety Report 21974676 (Version 2)
Quarter: 2023Q1

REPORT INFORMATION
  Report Type: Spontaneous
  Country: US (occurrence: US)
  Receive Date: 20230209
  Receipt Date: 20230224
  Transmission Date: 20230417
  Serious: Yes (Other)
  Sender: FDA-Public Use
  Company Number: US-TEVA-2023-US-2852595

PATIENT
  Age: 18 Day
  Sex: Female

DRUGS (2)
  1. VINCRISTINE [Suspect]
     Active Substance: VINCRISTINE
     Indication: Congenital fibrosarcoma
     Dosage: .0044 MG/KG DAILY; RECEIVED NINE THREE WEEKS CYCLES.
     Route: 065
  2. ACTINOMYCIN D [Suspect]
     Active Substance: DACTINOMYCIN
     Indication: Congenital fibrosarcoma
     Dosage: .0014 MG/KG DAILY; RECEIVED NINE THREE WEEKS CYCLES.
     Route: 065

REACTIONS (1)
  - Klebsiella bacteraemia [Unknown]
